FAERS Safety Report 9177404 (Version 2)
Quarter: 2013Q1

REPORT INFORMATION
  Report Type: Spontaneous
  Country: US (occurrence: US)
  Receive Date: 20130321
  Receipt Date: 20130321
  Transmission Date: 20140127
  Serious: No
  Sender: FDA-Public Use
  Company Number: US-MYLANLABS-2012S1016513

PATIENT
  Age: 54 Year
  Sex: Female
  Weight: 73.94 kg

DRUGS (5)
  1. TAMOXIFEN CITRATE [Suspect]
     Indication: BREAST CANCER
     Route: 048
     Dates: start: 2008
  2. ATACAND [Concomitant]
     Indication: BLOOD PRESSURE INCREASED
  3. AMLODIPINE [Concomitant]
     Indication: BLOOD PRESSURE INCREASED
  4. MAGNESIUM [Concomitant]
  5. BUTALBITAL [Concomitant]
     Indication: MIGRAINE

REACTIONS (5)
  - Drug effect decreased [Not Recovered/Not Resolved]
  - Menorrhagia [Not Recovered/Not Resolved]
  - Amenorrhoea [Recovered/Resolved]
  - Muscle spasms [Recovered/Resolved]
  - Wrong technique in drug usage process [Recovered/Resolved]
